FAERS Safety Report 14088937 (Version 1)
Quarter: 2017Q4

REPORT INFORMATION
  Report Type: Spontaneous
  Country: JP (occurrence: JP)
  Receive Date: 20171013
  Receipt Date: 20171013
  Transmission Date: 20180321
  Serious: Yes (Other)
  Sender: FDA-Public Use
  Company Number: JP-MYLANLABS-2017M1062470

PATIENT
  Age: 65 Year
  Sex: Female

DRUGS (1)
  1. EXEMESTANE. [Suspect]
     Active Substance: EXEMESTANE
     Indication: BREAST CANCER
     Route: 065

REACTIONS (6)
  - Insomnia [Recovering/Resolving]
  - Headache [Unknown]
  - Decreased appetite [Unknown]
  - Hot flush [Unknown]
  - Nausea [Unknown]
  - Palpitations [Unknown]
